FAERS Safety Report 6401937-4 (Version None)
Quarter: 2009Q4

REPORT INFORMATION
  Report Type: 
  Country: None (occurrence: None)
  Receive Date: 20091015
  Receipt Date: 20091013
  Transmission Date: 20100525
  Serious: Yes (Hospitalization)
  Sender: FDA-Public Use
  Company Number: A0811063A

PATIENT
  Age: 91 Year
  Sex: Male

DRUGS (3)
  1. VALTREX [Suspect]
     Dosage: 3000MG THREE TIMES PER DAY
     Route: 048
     Dates: start: 20091005
  2. ASPIRIN [Suspect]
     Indication: DRUG USE FOR UNKNOWN INDICATION
  3. TOPROL-XL [Concomitant]

REACTIONS (14)
  - ASTHENIA [None]
  - CIRCULATORY COLLAPSE [None]
  - CONFUSIONAL STATE [None]
  - DECREASED APPETITE [None]
  - FAECES DISCOLOURED [None]
  - FALL [None]
  - HAEMATOCHEZIA [None]
  - HAEMORRHAGE [None]
  - HYPERSOMNIA [None]
  - INCONTINENCE [None]
  - INFLUENZA LIKE ILLNESS [None]
  - LETHARGY [None]
  - OVERDOSE [None]
  - RECTAL HAEMORRHAGE [None]
